FAERS Safety Report 19939163 (Version 4)
Quarter: 2022Q1

REPORT INFORMATION
  Report Type: Report from Study
  Country: JP (occurrence: JP)
  Receive Date: 20211011
  Receipt Date: 20220113
  Transmission Date: 20220423
  Serious: Yes (Death, Hospitalization, Other)
  Sender: FDA-Public Use
  Company Number: NVSJ2021JP016216

PATIENT
  Age: 78 Year
  Sex: Male

DRUGS (20)
  1. ELTROMBOPAG OLAMINE [Suspect]
     Active Substance: ELTROMBOPAG OLAMINE
     Indication: Aplastic anaemia
     Dosage: 75 MG
     Route: 048
     Dates: start: 20191223, end: 20191226
  2. ELTROMBOPAG OLAMINE [Suspect]
     Active Substance: ELTROMBOPAG OLAMINE
     Dosage: 100 MG
     Route: 048
     Dates: start: 20200129, end: 20200505
  3. NEORAL [Suspect]
     Active Substance: CYCLOSPORINE
     Indication: Aplastic anaemia
     Dosage: 300 MG
     Route: 048
     Dates: start: 20191223, end: 20191226
  4. NEORAL [Suspect]
     Active Substance: CYCLOSPORINE
     Dosage: 140 MG
     Route: 048
     Dates: start: 20191227, end: 20200101
  5. NEORAL [Suspect]
     Active Substance: CYCLOSPORINE
     Dosage: 200 MG
     Route: 048
     Dates: start: 20200102, end: 20200204
  6. NEORAL [Suspect]
     Active Substance: CYCLOSPORINE
     Dosage: 100 MG
     Route: 048
     Dates: start: 20200204, end: 20200505
  7. THYMOGLOBULINE [Suspect]
     Active Substance: LAPINE T-LYMPHOCYTE IMMUNE GLOBULIN
     Indication: Aplastic anaemia
     Dosage: 150 MG
     Route: 065
     Dates: start: 20191225, end: 20191229
  8. LANSOPRAZOLE [Concomitant]
     Active Substance: LANSOPRAZOLE
     Indication: Product used for unknown indication
     Dosage: 15 MG
     Route: 048
     Dates: start: 20191220, end: 20200505
  9. HUMAN RED BLOOD CELL [Concomitant]
     Active Substance: HUMAN RED BLOOD CELL
     Indication: Product used for unknown indication
     Dosage: 840ML, TWICE A MONTH
     Route: 065
     Dates: start: 20191125, end: 20191222
  10. HUMAN RED BLOOD CELL [Concomitant]
     Active Substance: HUMAN RED BLOOD CELL
     Dosage: 840ML, 3TIMES A MONTH
     Route: 065
     Dates: start: 20191223, end: 20200119
  11. HUMAN RED BLOOD CELL [Concomitant]
     Active Substance: HUMAN RED BLOOD CELL
     Dosage: 560ML, TWICE A MONTH
     Route: 065
     Dates: start: 20200120, end: 20200216
  12. HUMAN RED BLOOD CELL [Concomitant]
     Active Substance: HUMAN RED BLOOD CELL
     Dosage: 560 ML, TWICE A MONTH
     Route: 065
     Dates: start: 20200217, end: 20200315
  13. HUMAN RED BLOOD CELL [Concomitant]
     Active Substance: HUMAN RED BLOOD CELL
     Dosage: 1120ML, 4 TIMES A MONTH
     Route: 065
     Dates: start: 20200316, end: 20200412
  14. HUMAN RED BLOOD CELL [Concomitant]
     Active Substance: HUMAN RED BLOOD CELL
     Dosage: 1400 ML, 5 TIMES A MONTH
     Route: 065
     Dates: start: 20200413, end: 20200510
  15. PLATELETS [Concomitant]
     Active Substance: HUMAN PLATELET, ALLOGENIC
     Indication: Product used for unknown indication
     Dosage: 400ML, TWICE A MONTH
     Route: 065
     Dates: start: 20191028, end: 20191124
  16. PLATELETS [Concomitant]
     Active Substance: HUMAN PLATELET, ALLOGENIC
     Dosage: 2000ML, 10 TIMES A MONTH
     Route: 065
     Dates: start: 20191125, end: 20191212
  17. PLATELETS [Concomitant]
     Active Substance: HUMAN PLATELET, ALLOGENIC
     Dosage: 800ML, 4 TIMES A MONTH
     Route: 065
     Dates: start: 20191223, end: 20200119
  18. PLATELETS [Concomitant]
     Active Substance: HUMAN PLATELET, ALLOGENIC
     Dosage: 200ML, ONCE A MONTH
     Route: 065
     Dates: start: 20200120, end: 20200216
  19. PLATELETS [Concomitant]
     Active Substance: HUMAN PLATELET, ALLOGENIC
     Dosage: 200ML, ONCE A MONTH
     Route: 065
     Dates: start: 20200217, end: 20200315
  20. PLATELETS [Concomitant]
     Active Substance: HUMAN PLATELET, ALLOGENIC
     Dosage: 1000ML,  5 TIMES A MONTH
     Route: 065
     Dates: start: 20200316, end: 20200412

REACTIONS (8)
  - Aplastic anaemia [Fatal]
  - Infection [Fatal]
  - Disease progression [Fatal]
  - Platelet count decreased [Unknown]
  - Lymphocyte count decreased [Unknown]
  - Rash [Recovered/Resolved]
  - Liver disorder [Recovered/Resolved]
  - Product use in unapproved indication [Unknown]

NARRATIVE: CASE EVENT DATE: 20191226
